FAERS Safety Report 12425053 (Version 1)
Quarter: 2016Q2

REPORT INFORMATION
  Report Type: Spontaneous
  Country: JP (occurrence: JP)
  Receive Date: 20160601
  Receipt Date: 20160601
  Transmission Date: 20160815
  Serious: Yes (Hospitalization, Other)
  Sender: FDA-Public Use
  Company Number: JP-GILEAD-2016-0194776

PATIENT
  Age: 76 Year
  Sex: Female
  Weight: 49 kg

DRUGS (7)
  1. SOVALDI [Suspect]
     Active Substance: SOFOSBUVIR
     Indication: CHRONIC HEPATITIS C
     Dosage: 400 MG, UNK
     Route: 048
     Dates: start: 20151102
  2. COPEGUS [Suspect]
     Active Substance: RIBAVIRIN
     Indication: CHRONIC HEPATITIS C
     Dosage: 200 MG, UNK
     Route: 048
     Dates: start: 20151102, end: 20151129
  3. OLMETEC [Concomitant]
     Active Substance: OLMESARTAN MEDOXOMIL
     Dosage: UNK
     Route: 065
  4. SELBEX [Concomitant]
     Active Substance: TEPRENONE
     Dosage: UNK
     Route: 065
  5. AMLODIPINE [Concomitant]
     Active Substance: AMLODIPINE BESYLATE
     Indication: HYPERTENSION
     Dosage: UNK
     Route: 065
  6. COPEGUS [Suspect]
     Active Substance: RIBAVIRIN
     Dosage: 200 MG, 3 TIMES WEEKLY
     Route: 048
     Dates: start: 20151130, end: 20151227
  7. COPEGUS [Suspect]
     Active Substance: RIBAVIRIN
     Dosage: 100 MG, EVERY OTHER DAY
     Route: 048
     Dates: start: 20151228, end: 20160107

REACTIONS (3)
  - Pancytopenia [Recovered/Resolved]
  - Anaemia [Recovered/Resolved]
  - Pernicious anaemia [Recovered/Resolved]

NARRATIVE: CASE EVENT DATE: 20160104
